FAERS Safety Report 9072845 (Version 1)
Quarter: 2013Q1

REPORT INFORMATION
  Report Type: Report from Study
  Country: US (occurrence: US)
  Receive Date: 20130129
  Receipt Date: 20130129
  Transmission Date: 20140127
  Serious: No
  Sender: FDA-Public Use
  Company Number: US-ABBOTT-12P-163-0929486-00

PATIENT
  Age: 20 Year
  Sex: Female

DRUGS (8)
  1. HUMIRA 40 MG/0.8 ML PEN [Suspect]
     Indication: CROHN^S DISEASE
     Dosage: LOADING DOSE
     Dates: start: 20120329, end: 20120329
  2. HUMIRA 40 MG/0.8 ML PEN [Suspect]
     Dosage: SECOND DOSE
     Dates: start: 20120412, end: 20120412
  3. HUMIRA 40 MG/0.8 ML PEN [Suspect]
  4. ENTOCORT [Concomitant]
     Indication: CROHN^S DISEASE
  5. PRENATAL VITAMINS [Concomitant]
     Indication: CROHN^S DISEASE
  6. CALCIUM [Concomitant]
     Indication: CROHN^S DISEASE
  7. CONTRACEPTIVES [Concomitant]
     Indication: CONTRACEPTION
  8. VITAMIN D [Concomitant]
     Indication: CROHN^S DISEASE

REACTIONS (3)
  - Injection site pain [Recovered/Resolved]
  - Injection site swelling [Recovered/Resolved]
  - Injection site pain [Recovered/Resolved]
